FAERS Safety Report 9293664 (Version 2)
Quarter: 2013Q2

REPORT INFORMATION
  Report Type: Report from Study
  Country: CA (occurrence: CA)
  Receive Date: 20130516
  Receipt Date: 20130521
  Transmission Date: 20140414
  Serious: Yes (Other)
  Sender: FDA-Public Use
  Company Number: CA-ABBOTT-13P-028-1073590-00

PATIENT
  Sex: Female
  Weight: 94 kg

DRUGS (2)
  1. HUMIRA [Suspect]
     Indication: CROHN^S DISEASE
     Route: 058
     Dates: start: 20120330
  2. AZATHIOPRINE [Concomitant]

REACTIONS (3)
  - Gastrointestinal stoma complication [Recovering/Resolving]
  - Wound [Recovering/Resolving]
  - Post procedural discomfort [Not Recovered/Not Resolved]
